FAERS Safety Report 7396106-8 (Version None)
Quarter: 2011Q1

REPORT INFORMATION
  Report Type: 
  Country: None (occurrence: None)
  Receive Date: 20110301
  Receipt Date: 20100611
  Transmission Date: 20110831
  Serious: Yes (Other)
  Sender: FDA-Public Use
  Company Number: 2211100-US-JNJFOC-20100502863

PATIENT
  Age: 8 Year
  Sex: Female

DRUGS (1)
  1. CHILDREN'S MOTRIN [Suspect]
     Indication: ILL-DEFINED DISORDER
     Dates: start: 20090101

REACTIONS (4)
  - SKIN DISCOLOURATION [None]
  - HYPERSENSITIVITY [None]
  - RESPIRATORY ARREST [None]
  - PRODUCT QUALITY ISSUE [None]
